FAERS Safety Report 24172309 (Version 1)
Quarter: 2024Q3

REPORT INFORMATION
  Report Type: Spontaneous
  Country: US (occurrence: US)
  Receive Date: 20240805
  Receipt Date: 20240805
  Transmission Date: 20241016
  Serious: No
  Sender: DR REDDYS
  Company Number: None

PATIENT
  Age: 23 Year
  Sex: Female

DRUGS (54)
  1. TACROLIMUS [Suspect]
     Active Substance: TACROLIMUS
     Indication: Autoimmune hepatitis
     Dates: start: 201712
  2. TACROLIMUS [Suspect]
     Active Substance: TACROLIMUS
     Dates: start: 201711, end: 2017
  3. TACROLIMUS [Suspect]
     Active Substance: TACROLIMUS
     Dates: start: 201810, end: 201810
  4. TACROLIMUS [Suspect]
     Active Substance: TACROLIMUS
     Dates: start: 201802, end: 2018
  5. TACROLIMUS [Suspect]
     Active Substance: TACROLIMUS
     Dates: start: 201801, end: 2018
  6. AZATHIOPRINE [Concomitant]
     Active Substance: AZATHIOPRINE
     Indication: Autoimmune hepatitis
     Dates: start: 201508, end: 2015
  7. AZATHIOPRINE [Concomitant]
     Active Substance: AZATHIOPRINE
     Dates: start: 201504, end: 2015
  8. AZATHIOPRINE [Concomitant]
     Active Substance: AZATHIOPRINE
     Dates: start: 201710, end: 2017
  9. AZATHIOPRINE [Concomitant]
     Active Substance: AZATHIOPRINE
     Dates: start: 201602, end: 2016
  10. AZATHIOPRINE [Concomitant]
     Active Substance: AZATHIOPRINE
     Dates: start: 201502, end: 2015
  11. AZATHIOPRINE [Concomitant]
     Active Substance: AZATHIOPRINE
     Dates: start: 201610, end: 2016
  12. AZATHIOPRINE [Concomitant]
     Active Substance: AZATHIOPRINE
     Dates: start: 201801, end: 201801
  13. AZATHIOPRINE [Concomitant]
     Active Substance: AZATHIOPRINE
     Dates: start: 201709, end: 2017
  14. AZATHIOPRINE [Concomitant]
     Active Substance: AZATHIOPRINE
     Dates: start: 201711, end: 2017
  15. AZATHIOPRINE [Concomitant]
     Active Substance: AZATHIOPRINE
     Dates: start: 201609, end: 2016
  16. AZATHIOPRINE [Concomitant]
     Active Substance: AZATHIOPRINE
     Dates: start: 201601, end: 2016
  17. AZATHIOPRINE [Concomitant]
     Active Substance: AZATHIOPRINE
     Dates: start: 201510
  18. AZATHIOPRINE [Concomitant]
     Active Substance: AZATHIOPRINE
     Dates: start: 201712
  19. AZATHIOPRINE [Concomitant]
     Active Substance: AZATHIOPRINE
     Dates: start: 201603, end: 2016
  20. AZATHIOPRINE [Concomitant]
     Active Substance: AZATHIOPRINE
     Dates: start: 201509, end: 2015
  21. AZATHIOPRINE [Concomitant]
     Active Substance: AZATHIOPRINE
     Dates: start: 201611
  22. MELOXICAM [Concomitant]
     Active Substance: MELOXICAM
     Indication: Arthritis
  23. HYDROXYCHLOROQUINE [Concomitant]
     Active Substance: HYDROXYCHLOROQUINE
     Indication: Arthritis
  24. PREDNISONE [Concomitant]
     Active Substance: PREDNISONE
     Indication: Autoimmune hepatitis
     Dates: start: 201504, end: 2015
  25. PREDNISONE [Concomitant]
     Active Substance: PREDNISONE
     Dates: start: 201810, end: 2018
  26. PREDNISONE [Concomitant]
     Active Substance: PREDNISONE
     Dates: start: 201610, end: 2016
  27. PREDNISONE [Concomitant]
     Active Substance: PREDNISONE
     Dates: start: 201509, end: 2015
  28. PREDNISONE [Concomitant]
     Active Substance: PREDNISONE
     Dates: start: 201711, end: 2017
  29. PREDNISONE [Concomitant]
     Active Substance: PREDNISONE
     Dates: start: 201508, end: 2015
  30. PREDNISONE [Concomitant]
     Active Substance: PREDNISONE
     Dates: start: 201611
  31. PREDNISONE [Concomitant]
     Active Substance: PREDNISONE
     Dates: start: 201502, end: 2015
  32. PREDNISONE [Concomitant]
     Active Substance: PREDNISONE
     Dates: start: 201603, end: 2016
  33. PREDNISONE [Concomitant]
     Active Substance: PREDNISONE
     Dates: start: 201510
  34. PREDNISONE [Concomitant]
     Active Substance: PREDNISONE
     Dates: start: 201712
  35. PREDNISONE [Concomitant]
     Active Substance: PREDNISONE
     Dates: start: 201710, end: 2017
  36. PREDNISONE [Concomitant]
     Active Substance: PREDNISONE
     Dates: start: 201601, end: 2016
  37. PREDNISONE [Concomitant]
     Active Substance: PREDNISONE
     Dates: start: 201709, end: 2017
  38. PREDNISONE [Concomitant]
     Active Substance: PREDNISONE
     Dates: start: 201801, end: 2018
  39. PREDNISONE [Concomitant]
     Active Substance: PREDNISONE
     Dates: start: 201811
  40. PREDNISONE [Concomitant]
     Active Substance: PREDNISONE
     Dates: start: 201609, end: 2016
  41. PREDNISONE [Concomitant]
     Active Substance: PREDNISONE
     Dates: start: 201802, end: 2018
  42. PREDNISONE [Concomitant]
     Active Substance: PREDNISONE
     Dates: start: 201602, end: 2016
  43. MYCOPHENOLATE MOFETIL [Concomitant]
     Active Substance: MYCOPHENOLATE MOFETIL
     Indication: Autoimmune hepatitis
     Dates: start: 201711, end: 2017
  44. MYCOPHENOLATE MOFETIL [Concomitant]
     Active Substance: MYCOPHENOLATE MOFETIL
     Dates: start: 201810, end: 201810
  45. MYCOPHENOLATE MOFETIL [Concomitant]
     Active Substance: MYCOPHENOLATE MOFETIL
     Dates: start: 201801, end: 2018
  46. MYCOPHENOLATE MOFETIL [Concomitant]
     Active Substance: MYCOPHENOLATE MOFETIL
     Dates: start: 201802, end: 2018
  47. MYCOPHENOLATE MOFETIL [Concomitant]
     Active Substance: MYCOPHENOLATE MOFETIL
     Dates: start: 201610, end: 2016
  48. MYCOPHENOLATE MOFETIL [Concomitant]
     Active Substance: MYCOPHENOLATE MOFETIL
     Dates: start: 201709, end: 2017
  49. MYCOPHENOLATE MOFETIL [Concomitant]
     Active Substance: MYCOPHENOLATE MOFETIL
     Dates: start: 201603, end: 2016
  50. MYCOPHENOLATE MOFETIL [Concomitant]
     Active Substance: MYCOPHENOLATE MOFETIL
     Dates: start: 201609, end: 2016
  51. MYCOPHENOLATE MOFETIL [Concomitant]
     Active Substance: MYCOPHENOLATE MOFETIL
     Dates: start: 201602, end: 2016
  52. MYCOPHENOLATE MOFETIL [Concomitant]
     Active Substance: MYCOPHENOLATE MOFETIL
     Dates: start: 201712
  53. MYCOPHENOLATE MOFETIL [Concomitant]
     Active Substance: MYCOPHENOLATE MOFETIL
     Dates: start: 201710, end: 2017
  54. MYCOPHENOLATE MOFETIL [Concomitant]
     Active Substance: MYCOPHENOLATE MOFETIL
     Dates: start: 201611

REACTIONS (1)
  - Headache [Unknown]
